FAERS Safety Report 5306018-9 (Version None)
Quarter: 2007Q2

REPORT INFORMATION
  Report Type: 
  Country: None (occurrence: None)
  Receive Date: 20070424
  Receipt Date: 20070412
  Transmission Date: 20071010
  Serious: Yes (Hospitalization)
  Sender: FDA-Public Use
  Company Number: US-ROCHE-486578

PATIENT
  Age: 62 Year
  Sex: Female
  Weight: 40.8 kg

DRUGS (5)
  1. CAPECITABINE [Suspect]
     Route: 048
     Dates: start: 20070214, end: 20070220
  2. BEVACIZUMAB [Suspect]
     Dosage: FORM:POWDER AND SOLVENT, INFUSION, SOLN.
     Route: 042
     Dates: start: 20070214
  3. 1 CONCOMITANT DRUG [Concomitant]
     Dosage: INTRAVENOUS FLUIDS NOS
  4. PERCODAN [Concomitant]
  5. DECADRON [Concomitant]

REACTIONS (4)
  - DEHYDRATION [None]
  - DIARRHOEA [None]
  - HYPONATRAEMIA [None]
  - PANCREATITIS [None]
